FAERS Safety Report 10732330 (Version 1)
Quarter: 2015Q1

REPORT INFORMATION
  Report Type: Spontaneous
  Country: US (occurrence: US)
  Receive Date: 20150123
  Receipt Date: 20150123
  Transmission Date: 20150721
  Serious: Yes (Hospitalization)
  Sender: FDA-Public Use
  Company Number: PHHY2015US005709

PATIENT
  Age: 57 Year
  Sex: Male

DRUGS (10)
  1. LEVOFLOXACIN. [Suspect]
     Active Substance: LEVOFLOXACIN
     Indication: SCROTAL SWELLING
     Route: 048
  2. CIPROFLOXACIN. [Suspect]
     Active Substance: CIPROFLOXACIN
     Dosage: 500 MG, BID FOR 72 HOURS
     Route: 048
  3. LEVOFLOXACIN. [Suspect]
     Active Substance: LEVOFLOXACIN
     Dosage: 500 MG, QD
     Route: 048
  4. DUTASTERIDE. [Concomitant]
     Active Substance: DUTASTERIDE
     Indication: PRODUCT USED FOR UNKNOWN INDICATION
     Route: 065
  5. LEVOFLOXACIN. [Suspect]
     Active Substance: LEVOFLOXACIN
     Indication: TESTICULAR SWELLING
     Dosage: 750 MG, QD
     Route: 042
  6. GENTAMICIN. [Concomitant]
     Active Substance: GENTAMICIN
     Indication: TESTICULAR PAIN
     Route: 065
  7. GENTAMICIN. [Concomitant]
     Active Substance: GENTAMICIN
     Indication: TESTICULAR SWELLING
  8. LEVOFLOXACIN. [Suspect]
     Active Substance: LEVOFLOXACIN
     Indication: TESTICULAR PAIN
     Route: 042
  9. CIPROFLOXACIN. [Suspect]
     Active Substance: CIPROFLOXACIN
     Indication: PRODUCT USED FOR UNKNOWN INDICATION
     Dosage: 500 MG, BID FOR 20 DAYS
     Route: 048
  10. AMOXICILLIN AND CLAVULANATE [Concomitant]
     Active Substance: AMOXICILLIN\CLAVULANIC ACID
     Indication: SCROTAL SWELLING
     Route: 065

REACTIONS (13)
  - Ischaemia [Recovered/Resolved]
  - Chills [Recovered/Resolved]
  - Back pain [Recovered/Resolved]
  - Vomiting [Recovered/Resolved]
  - Decreased appetite [Recovered/Resolved]
  - Pathogen resistance [Recovered/Resolved]
  - Pyrexia [Recovered/Resolved]
  - Nausea [Recovered/Resolved]
  - Photophobia [Recovered/Resolved]
  - Headache [Recovered/Resolved]
  - Orchitis [Recovered/Resolved]
  - Necrosis [Recovered/Resolved]
  - Meningitis [Recovered/Resolved]

NARRATIVE: CASE EVENT DATE: 2007
